FAERS Safety Report 4319973-0 (Version None)
Quarter: 2004Q1

REPORT INFORMATION
  Report Type: 
  Country: None (occurrence: None)
  Receive Date: 20040317
  Receipt Date: 20040302
  Transmission Date: 20041129
  Serious: Yes (Death, Hospitalization)
  Sender: FDA-Public Use
  Company Number: A-US2004-04868

PATIENT
  Age: 72 Year
  Sex: Female

DRUGS (2)
  1. TRACLEER [Suspect]
     Indication: PULMONARY HYPERTENSION
     Dosage: 62.5 MG, BID,ORAL
     Route: 048
     Dates: start: 20030902, end: 20031013
  2. FLOLAN [Concomitant]

REACTIONS (5)
  - ABDOMINAL DISTENSION [None]
  - CONDITION AGGRAVATED [None]
  - FLUID OVERLOAD [None]
  - OEDEMA PERIPHERAL [None]
  - RIGHT VENTRICULAR FAILURE [None]
